FAERS Safety Report 15900041 (Version 2)
Quarter: 2019Q1

REPORT INFORMATION
  Report Type: Spontaneous
  Country: US (occurrence: US)
  Receive Date: 20190201
  Receipt Date: 20190208
  Transmission Date: 20190417
  Serious: Yes (Hospitalization)
  Sender: FDA-Public Use
  Company Number: US-TEVA-2019-US-1004523

PATIENT

DRUGS (1)
  1. METRONIDAZOLE 500 MG TABLETS [Suspect]
     Active Substance: METRONIDAZOLE
     Route: 065

REACTIONS (4)
  - Product residue present [Unknown]
  - Product odour abnormal [Unknown]
  - Product taste abnormal [Unknown]
  - Hospitalisation [Unknown]
